FAERS Safety Report 8116734-1 (Version None)
Quarter: 2011Q4

REPORT INFORMATION
  Report Type: 
  Country: None (occurrence: None)
  Receive Date: 20111227
  Receipt Date: 20110907
  Transmission Date: 20120403
  Serious: No
  Sender: FDA-Public Use
  Company Number: PHEH2011US03649

PATIENT
  Age: 31 Year
  Sex: Female
  Weight: 99.8 kg

DRUGS (1)
  1. GILENYA [Suspect]
     Indication: MULTIPLE SCLEROSIS
     Dosage: 0.5 MG, QD, ORAL
     Route: 048
     Dates: start: 20110818

REACTIONS (4)
  - DECREASED APPETITE [None]
  - FEELING ABNORMAL [None]
  - DIARRHOEA [None]
  - HEADACHE [None]
